FAERS Safety Report 4347883-1 (Version None)
Quarter: 2004Q2

REPORT INFORMATION
  Report Type: 
  Country: None (occurrence: None)
  Receive Date: 20040426
  Receipt Date: 20040426
  Transmission Date: 20050107
  Serious: No
  Sender: FDA-Public Use
  Company Number: None

PATIENT
  Age: 35 Year
  Sex: Female

DRUGS (2)
  1. TERBUTALINE SULFATE [Suspect]
     Indication: LABOUR COMPLICATION
     Dosage: IV
     Route: 042
     Dates: start: 20040119
  2. METHYLERGONOVINE INJ (NOVARTIS - METHERGINE) [Suspect]
     Dosage: IV

REACTIONS (3)
  - CAESAREAN SECTION [None]
  - COMPLICATIONS OF MATERNAL EXPOSURE TO THERAPEUTIC DRUGS [None]
  - MEDICATION ERROR [None]
